FAERS Safety Report 4532880-3 (Version None)
Quarter: 2004Q4

REPORT INFORMATION
  Report Type: 
  Country: None (occurrence: None)
  Receive Date: 20041210
  Receipt Date: 20040917
  Transmission Date: 20050328
  Serious: No
  Sender: FDA-Public Use
  Company Number: 2004-00536

PATIENT
  Age: 69 Year
  Sex: Female
  Weight: 75.7 kg

DRUGS (7)
  1. VELCADE [Suspect]
     Indication: MULTIPLE MYELOMA
     Dosage: 2.30 MG, IV BOLUS
     Route: 040
     Dates: start: 20040719
  2. ZOMETA [Concomitant]
  3. ANZEMET (DOLASETRON MESILATE) [Concomitant]
  4. COMPAZINE [Concomitant]
  5. PEPCID [Concomitant]
  6. MGOXIDE (MAGNESIUM OXIDE) [Concomitant]
  7. SENOKOT [Concomitant]

REACTIONS (3)
  - BONE PAIN [None]
  - METASTASES TO BONE [None]
  - PARAESTHESIA [None]
